FAERS Safety Report 25051434 (Version 1)
Quarter: 2025Q1

REPORT INFORMATION
  Report Type: Spontaneous
  Country: IT (occurrence: IT)
  Receive Date: 20250307
  Receipt Date: 20250307
  Transmission Date: 20250409
  Serious: Yes (Death)
  Sender: AMGEN
  Company Number: IT-AMGEN-ITASP2025044254

PATIENT

DRUGS (8)
  1. TRASTUZUMAB [Suspect]
     Active Substance: TRASTUZUMAB
     Indication: Breast cancer
     Dosage: 8 MILLIGRAM/KILOGRAM, Q3WK, FOUR CYCLES
     Route: 065
  2. TRASTUZUMAB [Suspect]
     Active Substance: TRASTUZUMAB
     Dosage: 6 MILLIGRAM/KILOGRAM, Q3WK, THREE CYCLES
     Route: 065
  3. EPIRUBICIN [Concomitant]
     Active Substance: EPIRUBICIN
     Indication: HER2 positive breast cancer
  4. CYCLOPHOSPHAMIDE [Concomitant]
     Active Substance: CYCLOPHOSPHAMIDE
     Indication: HER2 positive breast cancer
  5. PERTUZUMAB [Concomitant]
     Active Substance: PERTUZUMAB
     Indication: HER2 positive breast cancer
     Dosage: 840 MILLIGRAM, Q3WK, FOUR CYCLES
  6. PERTUZUMAB [Concomitant]
     Active Substance: PERTUZUMAB
     Dosage: 420 MILLIGRAM, Q3WK, THREE CYCLES
  7. PACLITAXEL [Concomitant]
     Active Substance: PACLITAXEL
     Indication: HER2 positive breast cancer
  8. PACLITAXEL [Concomitant]
     Active Substance: PACLITAXEL

REACTIONS (3)
  - Death [Fatal]
  - Therapeutic product effect incomplete [Unknown]
  - Off label use [Unknown]
